FAERS Safety Report 24331970 (Version 3)
Quarter: 2024Q4

REPORT INFORMATION
  Report Type: Spontaneous
  Country: JP (occurrence: JP)
  Receive Date: 20240918
  Receipt Date: 20241129
  Transmission Date: 20250115
  Serious: Yes (Death, Other)
  Sender: ALEXION PHARMACEUTICALS
  Company Number: 2024A212220

PATIENT
  Age: 81 Year

DRUGS (8)
  1. ONDEXXYA [Suspect]
     Active Substance: ANDEXANET ALFA
     Indication: Subdural haematoma
     Dosage: SEE NARRATIVE
  2. ONDEXXYA [Suspect]
     Active Substance: ANDEXANET ALFA
     Dosage: SEE NARRATIVE
  3. ONDEXXYA [Suspect]
     Active Substance: ANDEXANET ALFA
     Dosage: SEE NARRATIVE
  4. ONDEXXYA [Suspect]
     Active Substance: ANDEXANET ALFA
     Dosage: SEE NARRATIVE
  5. ELIQUIS [Concomitant]
     Active Substance: APIXABAN
     Indication: Atrial fibrillation
     Dosage: DOSE UNKNOWN
  6. ELIQUIS [Concomitant]
     Active Substance: APIXABAN
     Dosage: DOSE UNKNOWN
  7. ELIQUIS [Concomitant]
     Active Substance: APIXABAN
     Dosage: DOSE UNKNOWN
  8. ELIQUIS [Concomitant]
     Active Substance: APIXABAN
     Dosage: DOSE UNKNOWN

REACTIONS (2)
  - Brain herniation [Fatal]
  - Subdural haematoma [Fatal]
